FAERS Safety Report 8058645-6 (Version None)
Quarter: 2012Q1

REPORT INFORMATION
  Report Type: 
  Country: None (occurrence: None)
  Receive Date: 20120120
  Receipt Date: 20120112
  Transmission Date: 20120608
  Serious: Yes (Death, Other)
  Sender: FDA-Public Use
  Company Number: GB-BRISTOL-MYERS SQUIBB COMPANY-16354649

PATIENT
  Age: 81 Year
  Sex: Female

DRUGS (11)
  1. METFORMIN HCL [Suspect]
     Dosage: 2550MG
     Route: 048
  2. MS CONTIN [Concomitant]
  3. DULOXETINE HYDROCHLORIDE [Concomitant]
  4. SIMVASTATIN [Concomitant]
  5. FUROSEMIDE [Concomitant]
  6. GLICLAZIDE [Concomitant]
  7. ALLOPURINOL [Concomitant]
  8. ACETAMINOPHEN [Concomitant]
  9. LEVOTHYROXINE SODIUM [Concomitant]
  10. LANSOPRAZOLE [Concomitant]
  11. CAPTOPRIL [Concomitant]

REACTIONS (3)
  - RENAL FAILURE ACUTE [None]
  - ABDOMINAL DISCOMFORT [None]
  - LACTIC ACIDOSIS [None]
